FAERS Safety Report 19818982 (Version 1)
Quarter: 2021Q3

REPORT INFORMATION
  Report Type: Report from Study
  Country: None (occurrence: ES)
  Receive Date: 20210912
  Receipt Date: 20210912
  Transmission Date: 20211014
  Serious: Yes (Hospitalization)
  Sender: FDA-Public Use
  Company Number: ES-ABBVIE-21K-144-4073622-00

PATIENT
  Sex: Male
  Weight: 77 kg

DRUGS (2)
  1. DUODOPA [Suspect]
     Active Substance: CARBIDOPA\LEVODOPA
     Indication: PARKINSON^S DISEASE
     Route: 050
     Dates: start: 20181005
  2. DUODOPA [Suspect]
     Active Substance: CARBIDOPA\LEVODOPA

REACTIONS (5)
  - Bedridden [Not Recovered/Not Resolved]
  - Gait inability [Not Recovered/Not Resolved]
  - Agitation [Not Recovered/Not Resolved]
  - Fall [Recovered/Resolved with Sequelae]
  - Hip fracture [Recovered/Resolved with Sequelae]

NARRATIVE: CASE EVENT DATE: 2021
